FAERS Safety Report 9303075 (Version 6)
Quarter: 2013Q3

REPORT INFORMATION
  Report Type: Report from Study
  Country: FR (occurrence: FR)
  Receive Date: 20130522
  Receipt Date: 20130826
  Transmission Date: 20140515
  Serious: Yes (Death, Hospitalization)
  Sender: FDA-Public Use
  Company Number: FR-PFIZER INC-2013150509

PATIENT
  Age: 75 Year
  Sex: Male
  Weight: 87 kg

DRUGS (2)
  1. TORISEL [Suspect]
     Indication: MANTLE CELL LYMPHOMA
     Dosage: 175 MG, WEEKLY
     Dates: start: 20100329, end: 20100406
  2. TORISEL [Suspect]
     Dosage: 75 MG, WEEKLY
     Dates: start: 20100413, end: 20100413

REACTIONS (7)
  - Lung infection [Fatal]
  - Tooth abscess [Unknown]
  - Anaemia [Unknown]
  - Leukopenia [Unknown]
  - Thrombocytopenia [Unknown]
  - Laryngitis [Unknown]
  - Candida infection [Unknown]
